FAERS Safety Report 5573877-4 (Version None)
Quarter: 2007Q4

REPORT INFORMATION
  Report Type: 
  Country: None (occurrence: None)
  Receive Date: 20071226
  Receipt Date: 20071218
  Transmission Date: 20080405
  Serious: Yes (Hospitalization, Other)
  Sender: FDA-Public Use
  Company Number: FR-ROXANE LABORATORIES, INC-2006-DE-00319GD

PATIENT
  Age: 38 Year
  Sex: Female

DRUGS (8)
  1. ISOPROTERENOL [Suspect]
     Indication: CARDIOGENIC SHOCK
     Dosage: 2.4 MG/H (HOUR 8 AFTER SELF-POISONING), -- (HOUR 11), 7.2 MG/H (HOUR 14), 24 MG/H (HOUR 16), 12 MG/H
     Route: 042
  2. LORAZEPAM [Suspect]
     Route: 048
  3. BETAXOLOL [Suspect]
     Route: 048
  4. ADRENALINE [Suspect]
     Indication: CARDIOGENIC SHOCK
     Dosage: 1 MCG/KG/MIN (HOUR 8 AFTER SELF-POISONING), 1.5 MCG/KG/MIN (HOUR 11), 2.4 MCG/KG/MIN (HOUR 14), 2.8
     Route: 042
  5. NORADRENALINE [Suspect]
     Indication: CARDIOGENIC SHOCK
     Dosage: 0.5 MCG/KG/MIN (HOUR 8 AND 11 AFTER SELF-POISONING), 1.5 MCG/KG/MIN (HOUR 14), 1.6 MCG/KG/MIN (HOUR
     Route: 042
  6. DOBUTAMINE HCL [Suspect]
     Indication: CARDIOGENIC SHOCK
     Dosage: 20 MCG/KG/MIN (DAY 2 AFTER SELF-POISONING), 25 MCG/KG/MIN (DAY 3), 20 MCG/KG/MIN (DAY 4)
  7. GLUCAGON [Suspect]
     Indication: CARDIOGENIC SHOCK
     Dosage: 2 X 5 MG
  8. HEPARIN [Suspect]

REACTIONS (10)
  - CARDIOGENIC SHOCK [None]
  - COMA [None]
  - CYANOSIS [None]
  - DRUG INEFFECTIVE [None]
  - DRUG TOXICITY [None]
  - HAEMATOMA [None]
  - PARALYSIS [None]
  - PERIPHERAL ISCHAEMIA [None]
  - RENAL FAILURE ACUTE [None]
  - VENTRICULAR HYPOKINESIA [None]
